FAERS Safety Report 14625412 (Version 1)
Quarter: 2018Q1

REPORT INFORMATION
  Report Type: Spontaneous
  Country: US (occurrence: US)
  Receive Date: 20180312
  Receipt Date: 20180312
  Transmission Date: 20180509
  Serious: No
  Sender: FDA-Public Use
  Company Number: US-ALLERGAN-1711450US

PATIENT
  Sex: Female

DRUGS (1)
  1. OXYTROL [Suspect]
     Active Substance: OXYBUTYNIN
     Indication: MICTURITION URGENCY
     Dosage: UNK, AS NEEDED EVERY 4 DAYS
     Route: 062
     Dates: end: 201703

REACTIONS (4)
  - Inappropriate schedule of drug administration [Unknown]
  - Application site pruritus [Unknown]
  - Application site irritation [Unknown]
  - Scratch [Unknown]
